FAERS Safety Report 20228877 (Version 1)
Quarter: 2021Q4

REPORT INFORMATION
  Report Type: Spontaneous
  Country: US (occurrence: US)
  Receive Date: 20211225
  Receipt Date: 20211225
  Transmission Date: 20220303
  Serious: No
  Sender: FDA-Public Use
  Company Number: US-SANOFI-00905509

PATIENT
  Age: 42 Year
  Sex: Female

DRUGS (1)
  1. DUPIXENT [Suspect]
     Active Substance: DUPILUMAB
     Indication: Eczema
     Dosage: DRUG STRUCTURE DOSAGE : 300 MG EVERY 2 WEEKS DRUG INTERVAL DOSAGE : EVERY 2 WEEKS DRUG TREATMENT DUR

REACTIONS (1)
  - No adverse event [Unknown]
